FAERS Safety Report 9678339 (Version 1)
Quarter: 2013Q4

REPORT INFORMATION
  Report Type: Spontaneous
  Country: US (occurrence: US)
  Receive Date: 20131108
  Receipt Date: 20131108
  Transmission Date: 20140711
  Serious: No
  Sender: FDA-Public Use
  Company Number: US-UPSHER-SMITH LABORATORIES, INC.-13000635

PATIENT
  Age: 53 Year
  Sex: Female

DRUGS (11)
  1. JANTOVEN [Suspect]
     Indication: PRODUCT USED FOR UNKNOWN INDICATION
     Dosage: 2.5 MG, QD
     Route: 048
     Dates: start: 20130220, end: 20130221
  2. JANTOVEN [Suspect]
     Dosage: 5 MG, QD
     Route: 048
     Dates: start: 20130222, end: 20130222
  3. JANTOVEN [Suspect]
     Dosage: 7.5 MG, QD
     Route: 048
     Dates: start: 20130223, end: 20130223
  4. JANTOVEN [Suspect]
     Dosage: 5 MG, QD
     Route: 048
     Dates: start: 20130224, end: 20130226
  5. CITALOPRAM [Concomitant]
     Dosage: UNK
  6. VALPROIC ACID [Concomitant]
     Dosage: UNK
  7. LOVENOX                            /00889602/ [Concomitant]
     Dosage: UNK
     Dates: end: 20130227
  8. FAMOTIDINE [Concomitant]
     Dosage: UNK
  9. SYNTHROID [Concomitant]
     Dosage: UNK
  10. FLAGYL                             /00012501/ [Concomitant]
     Dosage: UNK
  11. NITROGLYCERIN [Concomitant]
     Dosage: UNK

REACTIONS (2)
  - Petechiae [Recovering/Resolving]
  - International normalised ratio increased [Recovered/Resolved]
